FAERS Safety Report 6067327-1 (Version None)
Quarter: 2009Q1

REPORT INFORMATION
  Report Type: 
  Country: None (occurrence: None)
  Receive Date: 20090204
  Receipt Date: 20090204
  Transmission Date: 20090719
  Serious: Yes (Other)
  Sender: FDA-Public Use
  Company Number: None

PATIENT
  Age: 25 Year
  Sex: Female
  Weight: 59.8748 kg

DRUGS (1)
  1. MIRENA [Suspect]
     Indication: CONTRACEPTION
     Dosage: 1 INSERTION ONCE EVERY 5 YEARS INTRA-UTERINE
     Route: 015
     Dates: start: 20081225

REACTIONS (8)
  - DISCOMFORT [None]
  - DYSPAREUNIA [None]
  - HORMONE LEVEL ABNORMAL [None]
  - IRRITABILITY [None]
  - MENORRHAGIA [None]
  - MOOD ALTERED [None]
  - MUSCLE SPASMS [None]
  - PROCEDURAL COMPLICATION [None]
